FAERS Safety Report 17192536 (Version 2)
Quarter: 2019Q4

REPORT INFORMATION
  Report Type: Spontaneous
  Country: CH (occurrence: CH)
  Receive Date: 20191223
  Receipt Date: 20191228
  Transmission Date: 20200122
  Serious: Yes (Other)
  Sender: FDA-Public Use
  Company Number: CH-ABBVIE-19K-151-2911635-00

PATIENT
  Sex: Male
  Weight: 90 kg

DRUGS (5)
  1. CASODEX [Concomitant]
     Active Substance: BICALUTAMIDE
     Indication: PRODUCT USED FOR UNKNOWN INDICATION
  2. INEGY [Concomitant]
     Active Substance: EZETIMIBE\SIMVASTATIN
     Indication: PRODUCT USED FOR UNKNOWN INDICATION
  3. PARIET [Concomitant]
     Active Substance: RABEPRAZOLE SODIUM
     Indication: PRODUCT USED FOR UNKNOWN INDICATION
  4. LUCRIN DEPOT [Suspect]
     Active Substance: LEUPROLIDE ACETATE
     Indication: PROSTATE CANCER
     Dosage: ON LEFT SIDE
     Route: 058
     Dates: start: 20190703, end: 2019
  5. LUCRIN DEPOT [Suspect]
     Active Substance: LEUPROLIDE ACETATE
     Dosage: ON THE RIGHT SIDE
     Route: 058
     Dates: start: 2019

REACTIONS (12)
  - Injection site inflammation [Unknown]
  - Injection site erythema [Recovering/Resolving]
  - Injection site ulcer [Recovering/Resolving]
  - Injection site discharge [Unknown]
  - Injection site induration [Not Recovered/Not Resolved]
  - Injection site necrosis [Unknown]
  - Skin adhesion [Unknown]
  - Injection site abscess [Recovering/Resolving]
  - Injection site reaction [Recovering/Resolving]
  - Scar [Unknown]
  - Injection site infection [Recovering/Resolving]
  - Injection site plaque [Unknown]

NARRATIVE: CASE EVENT DATE: 2019
